FAERS Safety Report 4286035-0 (Version None)
Quarter: 2004Q1

REPORT INFORMATION
  Report Type: 
  Country: None (occurrence: None)
  Receive Date: 20040205
  Receipt Date: 20040127
  Transmission Date: 20041129
  Serious: Yes (Hospitalization)
  Sender: FDA-Public Use
  Company Number: PHBS2004AU01379

PATIENT
  Age: 40 Year
  Sex: Female

DRUGS (4)
  1. CYCLOSPORINE [Suspect]
     Indication: STEM CELL TRANSPLANT
     Route: 065
  2. ETOPOSIDE [Concomitant]
     Dosage: 60 MG/KG
  3. METHOTREXATE [Suspect]
     Route: 065
  4. ANALGESIC LIQ [Concomitant]

REACTIONS (18)
  - CHEST PAIN [None]
  - COMPUTERISED TOMOGRAM ABNORMAL [None]
  - CYTOMEGALOVIRUS SYNDROME [None]
  - EXTRAVASATION [None]
  - FEBRILE NEUTROPENIA [None]
  - GENERAL PHYSICAL HEALTH DETERIORATION [None]
  - GRAFT VERSUS HOST DISEASE [None]
  - HERPES SIMPLEX [None]
  - LUNG CONSOLIDATION [None]
  - MUCOSAL INFLAMMATION [None]
  - OESOPHAGEAL CANDIDIASIS [None]
  - OESOPHAGEAL DILATATION [None]
  - OESOPHAGEAL PERFORATION [None]
  - OESOPHAGEAL RUPTURE [None]
  - PERICARDIAL EFFUSION [None]
  - PLEURAL EFFUSION [None]
  - PNEUMOTHORAX [None]
  - RESPIRATORY DISTRESS [None]
